FAERS Safety Report 17756898 (Version 1)
Quarter: 2020Q2

REPORT INFORMATION
  Report Type: Spontaneous
  Country: GB (occurrence: GB)
  Receive Date: 20200507
  Receipt Date: 20200507
  Transmission Date: 20200714
  Serious: Yes (Other)
  Sender: FDA-Public Use
  Company Number: NVSC2020GB122849

PATIENT
  Age: 46 Year
  Sex: Male

DRUGS (2)
  1. SANDOSTATIN LAR DEPOT [Suspect]
     Active Substance: OCTREOTIDE ACETATE
     Indication: PRODUCT USED FOR UNKNOWN INDICATION
     Dosage: UNK
     Route: 065
  2. SANDOSTATIN [Suspect]
     Active Substance: OCTREOTIDE ACETATE
     Indication: ACROMEGALY
     Dosage: 20 MG, BIW
     Route: 065

REACTIONS (10)
  - Neoplasm progression [Unknown]
  - Weight increased [Unknown]
  - Fatigue [Unknown]
  - Mobility decreased [Unknown]
  - Pain [Unknown]
  - Drug ineffective [Unknown]
  - Pituitary tumour [Unknown]
  - Injection site pain [Unknown]
  - Injection site bruising [Unknown]
  - Injection site hypertrophy [Unknown]
